FAERS Safety Report 9325786 (Version 2)
Quarter: 2014Q2

REPORT INFORMATION
  Report Type: Report from Study
  Country: CA (occurrence: CA)
  Receive Date: 20130604
  Receipt Date: 20140428
  Transmission Date: 20141212
  Serious: Yes (Life-Threatening, Hospitalization, Other)
  Sender: FDA-Public Use
  Company Number: CA-JNJFOC-20130416160

PATIENT
  Sex: Male
  Weight: 101.9 kg

DRUGS (2)
  1. REMICADE [Suspect]
     Indication: RHEUMATOID ARTHRITIS
     Route: 042
     Dates: start: 20100413, end: 201305
  2. REMICADE [Suspect]
     Indication: CROHN^S DISEASE
     Route: 042
     Dates: start: 20100413, end: 201305

REACTIONS (4)
  - Bladder cancer [Unknown]
  - Appendicectomy [Recovering/Resolving]
  - Rheumatoid arthritis [Unknown]
  - Crohn^s disease [Unknown]
